FAERS Safety Report 18906115 (Version 1)
Quarter: 2021Q1

REPORT INFORMATION
  Report Type: Report from Study
  Country: None (occurrence: JP)
  Receive Date: 20210217
  Receipt Date: 20210217
  Transmission Date: 20210420
  Serious: Yes (Hospitalization)
  Sender: FDA-Public Use
  Company Number: JP-EISAI MEDICAL RESEARCH-EC-2021-087480

PATIENT
  Age: 83 Year
  Sex: Male
  Weight: 57 kg

DRUGS (11)
  1. RINDERON VG [Concomitant]
     Active Substance: BETAMETHASONE VALERATE\GENTAMICIN SULFATE
     Indication: DERMATITIS CONTACT
     Route: 061
     Dates: start: 20191206, end: 20200212
  2. OLMETEC OD [Concomitant]
     Active Substance: OLMESARTAN MEDOXOMIL
     Indication: HYPERTENSION
     Route: 048
     Dates: start: 20191207, end: 20200212
  3. ARICEPT [Suspect]
     Active Substance: DONEPEZIL HYDROCHLORIDE
     Route: 048
     Dates: start: 20191220, end: 20200211
  4. AMLODIPINE [Concomitant]
     Active Substance: AMLODIPINE BESYLATE
     Indication: HYPERTENSION
     Route: 048
     Dates: end: 20200213
  5. HIRUDOID [Concomitant]
     Active Substance: GLYCOSAMINOGLYCANS
     Indication: DERMATITIS CONTACT
     Route: 061
     Dates: start: 20191206, end: 20200212
  6. PLAVIX [Concomitant]
     Active Substance: CLOPIDOGREL BISULFATE
     Indication: THROMBOSIS PROPHYLAXIS
     Route: 048
     Dates: end: 20200212
  7. TOKISHIGYAKUKAGOSHUYUSHOKYOTO [Concomitant]
     Indication: PERIPHERAL VASCULAR DISORDER
     Dosage: GRANULATED POWDER
     Route: 048
     Dates: start: 20200124, end: 20200212
  8. TAKEPRON [Concomitant]
     Active Substance: LANSOPRAZOLE
     Indication: PROPHYLAXIS
     Route: 048
     Dates: end: 20200212
  9. ARICEPT [Suspect]
     Active Substance: DONEPEZIL HYDROCHLORIDE
     Indication: DEMENTIA ALZHEIMER^S TYPE
     Route: 048
     Dates: start: 20191206, end: 20191219
  10. TK?023 [Suspect]
     Active Substance: INVESTIGATIONAL PRODUCT
     Indication: DEMENTIA ALZHEIMER^S TYPE
     Route: 062
     Dates: start: 20191206, end: 20200212
  11. SERMION [Concomitant]
     Active Substance: NICERGOLINE
     Indication: CEREBROVASCULAR DISORDER
     Route: 048
     Dates: end: 20200212

REACTIONS (1)
  - Nephrotic syndrome [Recovering/Resolving]

NARRATIVE: CASE EVENT DATE: 20200204
